FAERS Safety Report 10307519 (Version 1)
Quarter: 2014Q3

REPORT INFORMATION
  Report Type: Spontaneous
  Country: US (occurrence: None)
  Receive Date: 20140714
  Receipt Date: 20140714
  Transmission Date: 20150326
  Serious: Yes (Life-Threatening, Hospitalization)
  Sender: FDA-Public Use
  Company Number: None

PATIENT
  Age: 53 Year
  Sex: Female
  Weight: 100.25 kg

DRUGS (1)
  1. LISINOPRIL 5 MG [Suspect]
     Active Substance: LISINOPRIL
     Indication: RENAL DISORDER
     Dosage: I PILL 1X A DAY ONCE DAILY
     Dates: start: 20140529, end: 20140529

REACTIONS (9)
  - Gait disturbance [None]
  - Hemiparesis [None]
  - Amnesia [None]
  - Impaired self-care [None]
  - Activities of daily living impaired [None]
  - Asthenia [None]
  - Swollen tongue [None]
  - Respiratory arrest [None]
  - Impaired driving ability [None]

NARRATIVE: CASE EVENT DATE: 20140529
